FAERS Safety Report 7729192-3 (Version None)
Quarter: 2011Q3

REPORT INFORMATION
  Report Type: 
  Country: None (occurrence: None)
  Receive Date: 20110906
  Receipt Date: 20110830
  Transmission Date: 20111222
  Serious: Yes (Hospitalization)
  Sender: FDA-Public Use
  Company Number: US-JNJFOC-20110900917

PATIENT
  Sex: Female
  Weight: 77.11 kg

DRUGS (8)
  1. LASIX [Concomitant]
     Indication: PRODUCT USED FOR UNKNOWN INDICATION
     Route: 048
     Dates: start: 20100101
  2. HYDRALAZINE HCL [Concomitant]
     Indication: HYPERTENSION
     Route: 048
     Dates: start: 20110401
  3. CARDIZEM [Concomitant]
     Indication: HYPERTENSION
     Route: 048
  4. POTASSIUM [Concomitant]
     Indication: BLOOD POTASSIUM DECREASED
     Route: 048
     Dates: start: 20080101
  5. XANAX [Concomitant]
     Indication: ANXIETY
     Route: 048
     Dates: start: 20060101
  6. LISINOPRIL [Concomitant]
     Indication: HYPERTENSION
     Route: 048
     Dates: start: 20100101
  7. LEVOTHYROXINE SODIUM [Concomitant]
     Indication: HYPOTHYROIDISM
     Route: 048
     Dates: start: 20090101
  8. LEVAQUIN [Suspect]
     Indication: PNEUMONIA BACTERIAL
     Route: 042
     Dates: start: 20110712, end: 20110715

REACTIONS (10)
  - NECK PAIN [None]
  - MUSCULOSKELETAL PAIN [None]
  - POOR PERIPHERAL CIRCULATION [None]
  - JOINT SWELLING [None]
  - HEADACHE [None]
  - PAIN IN EXTREMITY [None]
  - HYPOKINESIA [None]
  - MYALGIA [None]
  - DIARRHOEA [None]
  - NERVOUSNESS [None]
